FAERS Safety Report 7414536-2 (Version None)
Quarter: 2011Q2

REPORT INFORMATION
  Report Type: 
  Country: None (occurrence: None)
  Receive Date: 20110414
  Receipt Date: 20110404
  Transmission Date: 20111010
  Serious: Yes (Other)
  Sender: FDA-Public Use
  Company Number: US-JNJFOC-20110204581

PATIENT
  Age: 53 Year
  Sex: Male
  Weight: 77.11 kg

DRUGS (3)
  1. ALBUTEROL [Concomitant]
  2. EXTRA STRENGTH TYLENOL [Suspect]
     Route: 048
  3. EXTRA STRENGTH TYLENOL [Suspect]
     Indication: HEADACHE
     Route: 048

REACTIONS (2)
  - DYSPNOEA [None]
  - COUGH [None]
